FAERS Safety Report 4579293-6 (Version None)
Quarter: 2005Q1

REPORT INFORMATION
  Report Type: 
  Country: None (occurrence: None)
  Receive Date: 20050209
  Receipt Date: 20050127
  Transmission Date: 20050727
  Serious: Yes (Hospitalization)
  Sender: FDA-Public Use
  Company Number: MK200502-0010-1

PATIENT
  Age: 82 Year
  Sex: Female

DRUGS (27)
  1. TOFRANIL TAB [Suspect]
     Indication: CANCER PAIN
     Dosage: 30 MG, QD
     Dates: start: 20040716, end: 20041214
  2. NOVAMIN [Suspect]
     Dosage: 15 MG, QD
     Dates: start: 20040716, end: 20041214
  3. ADALAT-SLOW RELEASE [Concomitant]
  4. BUSCOPAN [Concomitant]
  5. CABERGOLINE [Concomitant]
  6. CHOCOLA [Concomitant]
  7. CYTOTEC [Concomitant]
  8. DEPAS [Concomitant]
  9. DIGOXIN [Concomitant]
  10. DAI-KENCHU-TO [Concomitant]
  11. EVOXAC [Concomitant]
  12. RIZE [Concomitant]
  13. FLUITRAN [Concomitant]
  14. GASMOTIN [Concomitant]
  15. GASTER [Concomitant]
  16. GASTROM [Concomitant]
  17. HALCION [Concomitant]
  18. INDERAL [Concomitant]
  19. KETOPROFEN [Concomitant]
  20. LAC B [Concomitant]
  21. TELEMINSOFT [Concomitant]
  22. LAXOBERON [Concomitant]
  23. LOXONIN [Concomitant]
  24. MAGNESIUM OXIDE [Concomitant]
  25. NOLVADEX [Concomitant]
  26. OXYCONTIN [Concomitant]
  27. PURSENNIND [Concomitant]

REACTIONS (4)
  - DEPRESSED LEVEL OF CONSCIOUSNESS [None]
  - DISORIENTATION [None]
  - INAPPROPRIATE ANTIDIURETIC HORMONE SECRETION [None]
  - UNRESPONSIVE TO VERBAL STIMULI [None]
